FAERS Safety Report 11165270 (Version 1)
Quarter: 2015Q2

REPORT INFORMATION
  Report Type: Spontaneous
  Country: US (occurrence: US)
  Receive Date: 20150604
  Receipt Date: 20150604
  Transmission Date: 20150821
  Serious: Yes (Other)
  Sender: FDA-Public Use
  Company Number: US-APOTEX-2015AP009583

PATIENT
  Sex: Male

DRUGS (1)
  1. FENTANYL TRANSDERMAL SYSTEM [Suspect]
     Active Substance: FENTANYL
     Indication: PAIN
     Dosage: 1 DF, ONCE EVERY 72 HOURS
     Route: 062

REACTIONS (4)
  - Loss of consciousness [Unknown]
  - Device leakage [Unknown]
  - Drug effect incomplete [Unknown]
  - Hyperhidrosis [Unknown]
